FAERS Safety Report 11596209 (Version 1)
Quarter: 2015Q4

REPORT INFORMATION
  Report Type: Spontaneous
  Country: US (occurrence: None)
  Receive Date: 20151005
  Receipt Date: 20151005
  Transmission Date: 20160304
  Serious: No
  Sender: FDA-Public Use
  Company Number: None

PATIENT
  Age: 63 Year
  Sex: Female
  Weight: 49 kg

DRUGS (1)
  1. PHENERGAN [Suspect]
     Active Substance: PROMETHAZINE HYDROCHLORIDE
     Indication: ARTHROPOD BITE
     Route: 048
     Dates: start: 20150410

REACTIONS (5)
  - Insomnia [None]
  - Discomfort [None]
  - Nausea [None]
  - Anxiety [None]
  - Vomiting [None]

NARRATIVE: CASE EVENT DATE: 20151004
